FAERS Safety Report 10815613 (Version 3)
Quarter: 2015Q1

REPORT INFORMATION
  Report Type: Spontaneous
  Country: US (occurrence: US)
  Receive Date: 20150218
  Receipt Date: 20150331
  Transmission Date: 20150721
  Serious: Yes (Hospitalization, Other)
  Sender: FDA-Public Use
  Company Number: CHPA2015US002321

PATIENT
  Age: 86 Year
  Sex: Female

DRUGS (3)
  1. EXCEDRIN TENSION HEADACHE [Suspect]
     Active Substance: ACETAMINOPHEN\CAFFEINE
     Indication: HEADACHE
     Dosage: 1 TO 4 A DAY
     Route: 048
  2. RANEXA [Suspect]
     Active Substance: RANOLAZINE
     Indication: PRODUCT USED FOR UNKNOWN INDICATION
     Route: 065
  3. EXCEDRIN TENSION HEADACHE [Suspect]
     Active Substance: ACETAMINOPHEN\CAFFEINE
     Indication: PAIN

REACTIONS (12)
  - Transient ischaemic attack [Unknown]
  - Spinal fracture [Unknown]
  - Arrhythmia [Recovering/Resolving]
  - Haemorrhoidal haemorrhage [Unknown]
  - Burning sensation [Recovered/Resolved]
  - Incorrect dose administered [Unknown]
  - Cardiac disorder [Recovering/Resolving]
  - Angina pectoris [Recovering/Resolving]
  - Rash [Recovered/Resolved]
  - Amnesia [Unknown]
  - Pneumonia [Unknown]
  - Palpitations [Recovering/Resolving]

NARRATIVE: CASE EVENT DATE: 201403
